FAERS Safety Report 7679866-8 (Version None)
Quarter: 2011Q3

REPORT INFORMATION
  Report Type: 
  Country: None (occurrence: None)
  Receive Date: 20110812
  Receipt Date: 20110809
  Transmission Date: 20111222
  Serious: Yes (Other)
  Sender: FDA-Public Use
  Company Number: CO-PFIZER INC-2011183475

PATIENT
  Age: 29 Year
  Sex: Female

DRUGS (2)
  1. RAPAMUNE [Suspect]
     Indication: PROPHYLAXIS AGAINST TRANSPLANT REJECTION
     Dosage: 3 MG, 1X/DAY
     Route: 048
     Dates: start: 20110115
  2. MYCOPHENOLATE MOFETIL [Suspect]

REACTIONS (5)
  - AGEUSIA [None]
  - DECREASED APPETITE [None]
  - BLOOD TRIGLYCERIDES INCREASED [None]
  - WEIGHT DECREASED [None]
  - BLOOD CHOLESTEROL INCREASED [None]
